FAERS Safety Report 21006054 (Version 5)
Quarter: 2023Q1

REPORT INFORMATION
  Report Type: Spontaneous
  Country: US (occurrence: US)
  Receive Date: 20220624
  Receipt Date: 20230209
  Transmission Date: 20230418
  Serious: Yes (Hospitalization, Other)
  Sender: FDA-Public Use
  Company Number: US-BRISTOL-MYERS SQUIBB COMPANY-2022-060260

PATIENT
  Age: 79 Year
  Sex: Male
  Weight: 81.65 kg

DRUGS (30)
  1. ELIQUIS [Suspect]
     Active Substance: APIXABAN
     Indication: Cerebrovascular accident prophylaxis
     Route: 048
  2. ELIQUIS [Suspect]
     Active Substance: APIXABAN
     Route: 048
     Dates: end: 20220612
  3. ELIQUIS [Suspect]
     Active Substance: APIXABAN
     Route: 048
     Dates: start: 202206, end: 202206
  4. ELIQUIS [Suspect]
     Active Substance: APIXABAN
     Route: 048
     Dates: start: 20220627, end: 20220630
  5. ELIQUIS [Suspect]
     Active Substance: APIXABAN
     Route: 048
     Dates: start: 20220101
  6. ELIQUIS [Suspect]
     Active Substance: APIXABAN
     Dates: start: 20221103
  7. ELIQUIS [Suspect]
     Active Substance: APIXABAN
     Route: 048
     Dates: start: 20190624
  8. GEMTESA [Suspect]
     Active Substance: VIBEGRON
     Indication: Product used for unknown indication
     Dates: start: 20220607
  9. CELEBREX [Concomitant]
     Active Substance: CELECOXIB
     Indication: Product used for unknown indication
  10. AMLODIPINE [Concomitant]
     Active Substance: AMLODIPINE BESYLATE
     Indication: Product used for unknown indication
  11. DIOVAN [Concomitant]
     Active Substance: VALSARTAN
     Indication: Product used for unknown indication
     Dosage: 200 TABLETS (DISP), 3 REFILLS
     Route: 048
     Dates: start: 20220913
  12. METOPROLOL [Concomitant]
     Active Substance: METOPROLOL
     Indication: Product used for unknown indication
     Dates: start: 202210
  13. LASIX [Concomitant]
     Active Substance: FUROSEMIDE
     Indication: Product used for unknown indication
     Dosage: 100 TABLET (DISP), REFILLS 1
     Route: 048
     Dates: start: 20220913
  14. VITAMIN D3 [Concomitant]
     Active Substance: CHOLECALCIFEROL
     Indication: Product used for unknown indication
     Dosage: STRENGTH 1000 UNITS, TAKE 2000 UNITS BY MOUTH DAILY
     Route: 048
  15. MAGNESIUM [Concomitant]
     Active Substance: MAGNESIUM
     Indication: Product used for unknown indication
  16. FLAXSEED [Concomitant]
     Active Substance: FLAX SEED
     Indication: Product used for unknown indication
     Route: 048
  17. TYLENOL [Concomitant]
     Active Substance: ACETAMINOPHEN
     Indication: Product used for unknown indication
     Route: 048
  18. VITAMIN C [Concomitant]
     Active Substance: ASCORBIC ACID
     Indication: Product used for unknown indication
     Dosage: TAKE 1000 MG BY MOUTH
     Route: 048
  19. LUMIGAN [Concomitant]
     Active Substance: BIMATOPROST
     Indication: Product used for unknown indication
     Dosage: 1 DROP NIGHTLY, OPHTHALMIC SOLUTION
  20. LIDEX [Concomitant]
     Active Substance: FLUOCINONIDE
     Indication: Product used for unknown indication
     Dosage: APPLY TOPICALLY
     Route: 061
     Dates: start: 20190515
  21. FROVA [Concomitant]
     Active Substance: FROVATRIPTAN SUCCINATE
     Indication: Migraine
     Dosage: TAKE 1 TABLET BY MOUTH AS NEEDED FOR MIGRAINE IF HEADACHE RECURS, MAY TAKE A SECOND TABLET IF FIRST
     Route: 048
     Dates: start: 20220707
  22. APRESOLINE HYDROCHLORIDE [Concomitant]
     Active Substance: HYDRALAZINE HYDROCHLORIDE
     Indication: Product used for unknown indication
     Dosage: 200 TABLET (DISP), REFILLS 1
     Route: 048
     Dates: start: 20221107
  23. NIZORAL [Concomitant]
     Active Substance: KETOCONAZOLE
     Indication: Product used for unknown indication
     Dosage: WASH EVERY OTHER DAY
     Dates: start: 20220214
  24. LUTEIN-ZEAXANTHIN [Concomitant]
     Indication: Product used for unknown indication
     Dosage: STRENGTH 25- 5MG
     Route: 048
  25. MAGNESIUM OXIDE [Concomitant]
     Active Substance: MAGNESIUM OXIDE
     Indication: Product used for unknown indication
     Dosage: 250 MG DAILY
     Route: 048
  26. TOPROL XL [Concomitant]
     Active Substance: METOPROLOL SUCCINATE
     Indication: Product used for unknown indication
     Dosage: 100 TABLET (DISP), REFILLS 3, 24 HR TABLET
     Route: 048
     Dates: start: 20221011
  27. MYRBETRIQ [Concomitant]
     Active Substance: MIRABEGRON
     Indication: Product used for unknown indication
     Dosage: 50 MG, ER TABLET
     Dates: start: 20220717
  28. PRILOSEC [Concomitant]
     Active Substance: OMEPRAZOLE MAGNESIUM
     Indication: Product used for unknown indication
     Dosage: AS NEEDED
     Dates: start: 20201201
  29. CIALIS [Concomitant]
     Active Substance: TADALAFIL
     Indication: Sexual dysfunction
     Dosage: 100 TABLET (DISP), REFILLS 3, TAKE 1 TABLET BY MOUTH PRIOR TO SEXUAL ACTIVITY
     Route: 048
     Dates: start: 20220126
  30. HERBALS\TURMERIC [Concomitant]
     Active Substance: HERBALS\TURMERIC
     Indication: Sexual dysfunction
     Route: 048
     Dates: start: 20220126

REACTIONS (10)
  - Wound haemorrhage [Recovered/Resolved]
  - Prostatic haemorrhage [Not Recovered/Not Resolved]
  - Sepsis [Unknown]
  - Prostatomegaly [Unknown]
  - Splenic thrombosis [Unknown]
  - Haemoglobin decreased [Unknown]
  - Haematocrit decreased [Unknown]
  - Contusion [Unknown]
  - Prescribed underdose [Unknown]
  - Intentional product use issue [Unknown]

NARRATIVE: CASE EVENT DATE: 20220607
